FAERS Safety Report 5598876-8 (Version None)
Quarter: 2008Q1

REPORT INFORMATION
  Report Type: 
  Country: None (occurrence: None)
  Receive Date: 20080122
  Receipt Date: 20080110
  Transmission Date: 20080703
  Serious: Yes (Death, Hospitalization, Other)
  Sender: FDA-Public Use
  Company Number: FR-WYE-H02214808

PATIENT
  Sex: Female

DRUGS (9)
  1. CORDARONE [Suspect]
     Route: 048
  2. PYOSTACINE [Suspect]
     Indication: INFECTION
     Route: 048
     Dates: end: 20071021
  3. KAYEXALATE [Concomitant]
     Dosage: DOSE AND FREQUENCY NOT SPECIFIED
     Route: 065
  4. LOXEN [Concomitant]
     Dosage: DOSE AND FREQUENCY NOT SPECIFIED
     Route: 065
  5. LASIX [Concomitant]
     Dosage: DOSE AND FREQUENCY NOT SPECIFIED
     Route: 065
  6. TEMESTA [Concomitant]
     Dosage: DOSE AND FREQUENCY NOT SPECIFIED
     Route: 048
  7. PREVISCAN [Suspect]
     Indication: PULMONARY EMBOLISM
     Dosage: 15 MG DAILY  ALTERNATING WITH 10 MG
     Route: 065
     Dates: end: 20071022
  8. PREVISCAN [Suspect]
     Route: 065
     Dates: start: 20071023, end: 20071024
  9. DOLIPRANE [Suspect]
     Indication: PAIN
     Dosage: 500 MG AS NEEDED
     Route: 065

REACTIONS (4)
  - FALL [None]
  - RECTAL HAEMORRHAGE [None]
  - SHOCK [None]
  - WOUND HAEMORRHAGE [None]
